FAERS Safety Report 7865049-5 (Version None)
Quarter: 2011Q4

REPORT INFORMATION
  Report Type: 
  Country: None (occurrence: None)
  Receive Date: 20111028
  Receipt Date: 20101006
  Transmission Date: 20120403
  Serious: No
  Sender: FDA-Public Use
  Company Number: US-GLAXOSMITHKLINE-A0885234A

PATIENT
  Age: 70 Year
  Sex: Female

DRUGS (3)
  1. PENICILLIN [Concomitant]
  2. ADVAIR DISKUS 100/50 [Suspect]
     Indication: PRODUCT USED FOR UNKNOWN INDICATION
     Dosage: 1BLS TWICE PER DAY
     Route: 055
     Dates: start: 20101005, end: 20101006
  3. METOPROLOL TARTRATE [Concomitant]

REACTIONS (3)
  - CHILLS [None]
  - SENSORY DISTURBANCE [None]
  - ACCIDENTAL OVERDOSE [None]
